FAERS Safety Report 4837468-2 (Version None)
Quarter: 2005Q4

REPORT INFORMATION
  Report Type: 
  Country: None (occurrence: None)
  Receive Date: 20051122
  Receipt Date: 20051111
  Transmission Date: 20060501
  Serious: Yes (Disabling, Other)
  Sender: FDA-Public Use
  Company Number: GB200511000154

PATIENT
  Age: 80 Year
  Sex: Female

DRUGS (6)
  1. YENTREVE (DULOXETINE HYDROCHLORIDE) [Suspect]
     Indication: STRESS INCONTINENCE
     Dosage: 20 MG, ORAL
     Route: 048
     Dates: start: 20051004, end: 20051006
  2. TAMOXIFEN CITRATE [Concomitant]
  3. BENDROFLUAZIDE (BENDROFLUMETHIAZIDE) [Concomitant]
  4. DILTIAZEM [Concomitant]
  5. DOXAZOSIN (DOXAZOSIN) [Concomitant]
  6. RABEPRAZOLE SODIUM [Concomitant]

REACTIONS (2)
  - FALL [None]
  - FOOT FRACTURE [None]
